FAERS Safety Report 12890441 (Version 2)
Quarter: 2017Q2

REPORT INFORMATION
  Report Type: Spontaneous
  Country: AT (occurrence: AT)
  Receive Date: 20161027
  Receipt Date: 20170612
  Transmission Date: 20170830
  Serious: Yes (Hospitalization, Other)
  Sender: FDA-Public Use
  Company Number: AT-ELI_LILLY_AND_COMPANY-AT201610006192

PATIENT
  Age: 53 Year
  Sex: Female
  Weight: 60 kg

DRUGS (6)
  1. LYRICA [Suspect]
     Active Substance: PREGABALIN
     Indication: PRODUCT USED FOR UNKNOWN INDICATION
     Dosage: 100 MG, DAILY
     Route: 048
     Dates: start: 20160919, end: 20160925
  2. ARIPIPRAZOL [Interacting]
     Active Substance: ARIPIPRAZOLE
     Indication: PRODUCT USED FOR UNKNOWN INDICATION
     Dosage: 10 MG, DAILY
     Route: 048
     Dates: start: 20160923
  3. TRITTICO [Concomitant]
     Active Substance: TRAZODONE HYDROCHLORIDE
     Indication: PRODUCT USED FOR UNKNOWN INDICATION
     Dosage: 300 MG, DAILY
     Route: 048
     Dates: start: 20160923
  4. CYMBALTA [Suspect]
     Active Substance: DULOXETINE HYDROCHLORIDE
     Indication: PRODUCT USED FOR UNKNOWN INDICATION
     Dosage: 60 MG, DAILY
     Route: 048
     Dates: start: 20160923
  5. CIRCADIN [Concomitant]
     Active Substance: MELATONIN
     Indication: PRODUCT USED FOR UNKNOWN INDICATION
     Dosage: UNK, UNKNOWN
     Route: 065
     Dates: start: 20160930
  6. LYRICA [Suspect]
     Active Substance: PREGABALIN
     Dosage: 37.5 MG, DAILY
     Route: 048
     Dates: start: 20160926, end: 20160929

REACTIONS (6)
  - Drug interaction [Unknown]
  - Blood pressure increased [Unknown]
  - Blood cholesterol increased [Unknown]
  - White blood cell count [Unknown]
  - Urinary retention [Recovered/Resolved]
  - Antipsychotic drug level increased [Unknown]

NARRATIVE: CASE EVENT DATE: 20160923
